FAERS Safety Report 10224555 (Version 3)
Quarter: 2014Q3

REPORT INFORMATION
  Report Type: Spontaneous
  Country: US (occurrence: None)
  Receive Date: 20140605
  Receipt Date: 20140707
  Transmission Date: 20150326
  Serious: Yes (Hospitalization)
  Sender: FDA-Public Use
  Company Number: IPC201405-000262

PATIENT
  Age: 59 Year
  Sex: Female
  Weight: 60 kg

DRUGS (18)
  1. HYDROCHLOROQUINE [Suspect]
     Active Substance: HYDROXYCHLOROQUINE SULFATE
     Indication: RHEUMATOID ARTHRITIS
     Route: 048
     Dates: start: 20101213, end: 20140307
  2. LACTULOSE (LACTULOSE) (LACTULOSE) [Concomitant]
  3. WELLBUTRIN (BUPROPION) (BUPROPION) [Concomitant]
  4. TRAZODONE [Concomitant]
     Active Substance: TRAZODONE HYDROCHLORIDE
  5. CLONAZEPAM (CLONAZEPAM) (CLONAZEPAM) [Concomitant]
     Active Substance: CLONAZEPAM
  6. OXYCONTIN (OXYCODONE) (OXYCODONE) [Concomitant]
  7. MORPHINE (MORPHINE) (MORPHINE) [Concomitant]
  8. FLUCONAZOLE (FLUCONAZOLE) (FLUCONAZOLE) [Concomitant]
  9. INDOMETHACIN (INDOMETHACIN) (INDOMETHACIN) [Concomitant]
  10. FLUTICASONE (FLUTICASONE ) (FLUTICASONE ) [Concomitant]
  11. LEVOTHYROXINE (LEVOTHYROXINE) (LEVOTHYROXINE) [Concomitant]
     Active Substance: LEVOTHYROXINE
  12. ZOMIG (ZOLMITRIPTAN) (ZOLMITRIPTAN) [Concomitant]
  13. ASTELIN (AZELASTINE) (AZELASTINE) [Concomitant]
  14. LIDODERM (LIDOCAINE) (LIDOCAINE) [Concomitant]
  15. LIOTHYRONINE (LIOTHYRONINE) (LIOTHYRONINE) [Concomitant]
  16. ZOLPIDEM [Concomitant]
     Active Substance: ZOLPIDEM\ZOLPIDEM TARTRATE
  17. CLOTRIMAXAZOLE (CLOTRIMAXAZOLE) (CLOTRIMAXAZOLE) [Concomitant]
  18. LAMOTRIGINE (LAMOTRIGINE) (LAMOTRIGINE) [Concomitant]
     Active Substance: LAMOTRIGINE

REACTIONS (4)
  - Eye discharge [None]
  - Unevaluable event [None]
  - Eye disorder [None]
  - Eye injury [None]

NARRATIVE: CASE EVENT DATE: 20140425
